FAERS Safety Report 13603395 (Version 1)
Quarter: 2017Q2

REPORT INFORMATION
  Report Type: Spontaneous
  Country: US (occurrence: US)
  Receive Date: 20170601
  Receipt Date: 20170601
  Transmission Date: 20170912
  Serious: No
  Sender: FDA-Public Use
  Company Number: US-OTSUKA-2016_017596

PATIENT
  Age: 78 Year
  Sex: Male

DRUGS (1)
  1. SAMSCA [Suspect]
     Indication: BLOOD SODIUM DECREASED
     Dosage: 15 MG, BIW
     Route: 048
     Dates: end: 20160706

REACTIONS (1)
  - Inappropriate schedule of drug administration [Unknown]
